FAERS Safety Report 9414646 (Version 4)
Quarter: 2013Q3

REPORT INFORMATION
  Report Type: Spontaneous
  Country: US (occurrence: None)
  Receive Date: 20130717
  Receipt Date: 20130924
  Transmission Date: 20140515
  Serious: Yes (Other)
  Sender: FDA-Public Use
  Company Number: ACO_36035_2013

PATIENT
  Age: 48 Year
  Sex: Female

DRUGS (1)
  1. AMPYRA [Suspect]
     Indication: MULTIPLE SCLEROSIS
     Dates: start: 20130410, end: 20130417

REACTIONS (7)
  - Rash [None]
  - Fatigue [None]
  - Abdominal pain upper [None]
  - Malaise [None]
  - Nausea [None]
  - Headache [None]
  - Menorrhagia [None]
